FAERS Safety Report 16805414 (Version 1)
Quarter: 2019Q3

REPORT INFORMATION
  Report Type: Spontaneous
  Country: US (occurrence: US)
  Receive Date: 20190724
  Receipt Date: 20190724
  Transmission Date: 20191005
  Serious: Yes (Other)
  Sender: FDA-Public Use
  Company Number: None

PATIENT
  Age: 62 Year
  Sex: Male
  Weight: 84.37 kg

DRUGS (1)
  1. VORTIOXETINE 10MG [Suspect]
     Active Substance: VORTIOXETINE
     Indication: MAJOR DEPRESSION
     Route: 048
     Dates: start: 20190521, end: 20190606

REACTIONS (4)
  - Abdominal pain [None]
  - Lipase increased [None]
  - Pancreatitis acute [None]
  - Amylase increased [None]

NARRATIVE: CASE EVENT DATE: 20190531
